FAERS Safety Report 22724532 (Version 4)
Quarter: 2024Q2

REPORT INFORMATION
  Report Type: Spontaneous
  Country: US (occurrence: US)
  Receive Date: 20230719
  Receipt Date: 20240628
  Transmission Date: 20240716
  Serious: Yes (Hospitalization)
  Sender: FDA-Public Use
  Company Number: US-TEVA-2023-US-2906800

PATIENT
  Age: 86 Year
  Sex: Male

DRUGS (4)
  1. MEMANTINE [Suspect]
     Active Substance: MEMANTINE
     Indication: Dementia Alzheimer^s type
     Dosage: 60 PILLS MISSING FROM HIS MEMANTINE BOTTLE
     Route: 065
  2. MEMANTINE [Suspect]
     Active Substance: MEMANTINE
     Indication: Dementia Alzheimer^s type
     Dosage: DOSAGE TEXT: 60 PILLS MISSING FROM HIS MEMANTINE BOTTLE
     Route: 065
  3. METOPROLOL SUCCINATE [Concomitant]
     Active Substance: METOPROLOL SUCCINATE
     Indication: Hypertension
     Route: 065
  4. MECLIZINE [Suspect]
     Active Substance: MECLIZINE HYDROCHLORIDE
     Indication: Dizziness
     Route: 065

REACTIONS (9)
  - Echolalia [Recovered/Resolved]
  - Hypertension [Recovered/Resolved]
  - Overdose [Unknown]
  - Agitation [Recovered/Resolved]
  - Catatonia [Recovered/Resolved]
  - Hallucination, auditory [Recovered/Resolved]
  - Repetitive speech [Recovered/Resolved]
  - Behaviour disorder [Recovered/Resolved]
  - Treatment noncompliance [Unknown]
